FAERS Safety Report 8204417-9 (Version None)
Quarter: 2012Q1

REPORT INFORMATION
  Report Type: 
  Country: None (occurrence: None)
  Receive Date: 20120313
  Receipt Date: 20120313
  Transmission Date: 20120608
  Serious: Yes (Death)
  Sender: FDA-Public Use
  Company Number: None

PATIENT
  Age: 28 Year
  Sex: Male
  Weight: 99.79 kg

DRUGS (1)
  1. METHADONE HCL [Suspect]
     Indication: PAIN
     Dosage: 2TABS
     Route: 048
     Dates: start: 20090825, end: 20090926

REACTIONS (2)
  - RESPIRATORY DEPRESSION [None]
  - DRUG DEPENDENCE [None]
